FAERS Safety Report 7519732-1 (Version None)
Quarter: 2011Q2

REPORT INFORMATION
  Report Type: 
  Country: None (occurrence: None)
  Receive Date: 20110602
  Receipt Date: 20110526
  Transmission Date: 20111010
  Serious: Yes (Hospitalization, Other)
  Sender: FDA-Public Use
  Company Number: US-PURDUE-USA-2011-0069055

PATIENT
  Age: 52 Year
  Sex: Female
  Weight: 61.22 kg

DRUGS (11)
  1. COLACE CAPSULES [Concomitant]
     Indication: CONSTIPATION
     Dosage: 100 MG, PRN
     Route: 048
     Dates: start: 20101221
  2. LYRICA [Concomitant]
     Indication: PRODUCT USED FOR UNKNOWN INDICATION
     Dosage: UNK
     Dates: start: 20101221, end: 20110417
  3. PREVACID [Concomitant]
     Indication: DYSPEPSIA
     Dosage: 15 MG, DAILY
     Route: 048
     Dates: start: 20110302
  4. OXYCODONE HCL [Concomitant]
     Indication: PAIN
     Dosage: 15 MG, Q4H PRN
     Route: 048
     Dates: start: 20090624
  5. KLONOPIN [Suspect]
     Indication: INSOMNIA
     Dosage: 2 MG, HS
     Route: 048
     Dates: start: 20060220
  6. ZOFRAN [Concomitant]
     Indication: NAUSEA
     Dosage: 8 MG, PRN
     Route: 048
     Dates: start: 20110216
  7. NIFEREX FORTE [Concomitant]
     Indication: SUPPLEMENTATION THERAPY
     Dosage: UNK
     Dates: start: 20100201
  8. OXYCONTIN [Suspect]
     Indication: PAIN
     Dosage: 30 MG, Q12H
     Route: 048
     Dates: start: 20090624
  9. TRAZODONE HCL [Suspect]
     Indication: INSOMNIA
     Dosage: 50 MG, HS
     Route: 048
     Dates: start: 20110329, end: 20110417
  10. SOMA [Suspect]
     Indication: PRODUCT USED FOR UNKNOWN INDICATION
     Dosage: UNK
  11. SEROQUEL [Suspect]
     Indication: INSOMNIA
     Dosage: 200 MG, HS
     Route: 048
     Dates: start: 20060201

REACTIONS (9)
  - OVERDOSE [None]
  - PATHOLOGICAL FRACTURE [None]
  - ANAEMIA [None]
  - ILEUS [None]
  - MENTAL STATUS CHANGES [None]
  - PNEUMONIA [None]
  - HYPOXIA [None]
  - PULMONARY MASS [None]
  - LOSS OF CONSCIOUSNESS [None]
